FAERS Safety Report 15523493 (Version 5)
Quarter: 2018Q4

REPORT INFORMATION
  Report Type: Spontaneous
  Country: US (occurrence: US)
  Receive Date: 20181018
  Receipt Date: 20181211
  Transmission Date: 20190205
  Serious: Yes (Other)
  Sender: FDA-Public Use
  Company Number: US-AMGEN-USASP2018144237

PATIENT
  Age: 84 Year
  Sex: Male
  Weight: 64.4 kg

DRUGS (9)
  1. AVODART [Concomitant]
     Active Substance: DUTASTERIDE
     Dosage: 0.5 MG, QD
  2. TROSPIUM [Concomitant]
     Active Substance: TROSPIUM
     Dosage: 20 MG, BID
  3. VITAMIN B12 [Concomitant]
     Active Substance: CYANOCOBALAMIN
     Dosage: 1000 MUG, QD
  4. VITAMIN D [Concomitant]
     Active Substance: CHOLECALCIFEROL
     Dosage: 50000 UNIT, Q2WK
  5. TESTOSTERONE. [Concomitant]
     Active Substance: TESTOSTERONE
     Dosage: 1.62 G, QD
     Route: 061
  6. FLOMAX [Concomitant]
     Active Substance: TAMSULOSIN HYDROCHLORIDE
     Dosage: 0.4 MG, 2 DAILY
  7. METOPROLOL. [Concomitant]
     Active Substance: METOPROLOL
     Dosage: 50 MG, 1/2 TABLET DAILY
  8. PANTOPRAZOLE [Concomitant]
     Active Substance: PANTOPRAZOLE
     Dosage: 40 MG, QD
  9. PROCRIT [Suspect]
     Active Substance: ERYTHROPOIETIN
     Indication: LARGE GRANULAR LYMPHOCYTOSIS
     Dosage: 40000 UNIT, QWK
     Route: 058
     Dates: start: 20121204, end: 20180921

REACTIONS (4)
  - Parvovirus B19 infection [Unknown]
  - Drug intolerance [Not Recovered/Not Resolved]
  - Aplasia pure red cell [Unknown]
  - Drug effect decreased [Unknown]

NARRATIVE: CASE EVENT DATE: 2018
